FAERS Safety Report 25424432 (Version 1)
Quarter: 2025Q2

REPORT INFORMATION
  Report Type: Spontaneous
  Country: US (occurrence: US)
  Receive Date: 20250611
  Receipt Date: 20250611
  Transmission Date: 20250716
  Serious: No
  Sender: SANOFI AVENTIS
  Company Number: US-SA-2025SA164556

PATIENT
  Sex: Female

DRUGS (11)
  1. DUPIXENT [Suspect]
     Active Substance: DUPILUMAB
     Indication: Dermatitis atopic
     Dosage: 300 MG, QOW
     Route: 058
     Dates: start: 20240625
  2. AZITHROMYCIN [Concomitant]
     Active Substance: AZITHROMYCIN
  3. BENZONATATE [Concomitant]
     Active Substance: BENZONATATE
  4. CITALOPRAM [Concomitant]
     Active Substance: CITALOPRAM
  5. CITALOPRAM [Concomitant]
     Active Substance: CITALOPRAM
  6. FLUOCINONIDE [Concomitant]
     Active Substance: FLUOCINONIDE
  7. LORATADINE [Concomitant]
     Active Substance: LORATADINE
  8. PREDNISONE [Concomitant]
     Active Substance: PREDNISONE
  9. SUDOGEST [Concomitant]
     Active Substance: PSEUDOEPHEDRINE HYDROCHLORIDE
  10. TRAZODONE [Concomitant]
     Active Substance: TRAZODONE HYDROCHLORIDE
  11. TRIAMCINOLONE [Concomitant]
     Active Substance: TRIAMCINOLONE

REACTIONS (5)
  - Discomfort [Not Recovered/Not Resolved]
  - Rash [Not Recovered/Not Resolved]
  - Skin fissures [Not Recovered/Not Resolved]
  - Drug ineffective [Unknown]
  - Product dose omission in error [Unknown]
